FAERS Safety Report 9696289 (Version 2)
Quarter: 2013Q4

REPORT INFORMATION
  Report Type: Spontaneous
  Country: FR (occurrence: None)
  Receive Date: 20131115
  Receipt Date: 20131127
  Transmission Date: 20140711
  Serious: Yes (Hospitalization)
  Sender: FDA-Public Use
  Company Number: SYM-2013-12268

PATIENT
  Age: 92 Year
  Sex: Female

DRUGS (24)
  1. FLAGYL [Suspect]
     Indication: LUNG DISORDER
     Route: 048
     Dates: start: 20130728, end: 20130820
  2. VOLTARENE [Suspect]
     Indication: PRODUCT USED FOR UNKNOWN INDICATION
     Route: 048
     Dates: start: 20130820, end: 20130831
  3. ZOPHREN [Suspect]
     Indication: VOMITING
     Route: 048
     Dates: start: 20130728, end: 20130820
  4. ACUPAN [Suspect]
     Indication: ABDOMINAL PAIN
     Route: 048
     Dates: start: 20130728, end: 20130820
  5. DROLEPTAN [Suspect]
     Indication: PRODUCT USED FOR UNKNOWN INDICATION
     Route: 048
     Dates: start: 20130728, end: 20130820
  6. ROCEPHINE [Suspect]
     Indication: INFECTION
     Route: 042
     Dates: start: 20130728, end: 20130820
  7. ALLOPURINOL(ALLOPURINOL)(ALLOPURINOL) [Concomitant]
  8. INEXIUM (ESOMEPRAZOLE MAGNESIUM(ESOMEPRAZOLE MAGNESIUM) [Concomitant]
  9. EUPANTOL(PANTOPRAZOLE SODIUM SESQUIHYDRATE)(PANTOPRAZOLE SODIUM SESQUIHYDRATE) [Concomitant]
  10. EUPRESSYL(URAPIDIL)(URAPIDIL) [Concomitant]
  11. TARDYFERON(FERROUS SULFATE)(FERROUS SULFATE) [Concomitant]
  12. FUMAFER(FERROUS FUMARATE)(FERROUS FUMARATE) [Concomitant]
  13. SPECIAFOLDINE(FOLIC ACID)(FOLIC ACID) [Concomitant]
  14. CALCIPARINE (HEPARIN CALCIUM)(HEPARIN CALCIUM) [Concomitant]
  15. PARACETAMOL(PARACAETAMOL)(PARACETAMOL) [Concomitant]
  16. TENORMINE(ATENOLOL)(ATENOLOL) [Concomitant]
  17. KARDEGIC(ACETYLSALICYLATE LYSINE)(ACETYLSALICYLATE LYSINE) [Concomitant]
  18. COZAAR(LOSARTAN POTASSIUM)(LOSARTAN POTASSIUM) [Concomitant]
  19. IKOREL(NICORANDIL)(NICORANDIL) [Concomitant]
  20. CORDARONE(AMIODARONE HYDROCHLORIDE)(AMIODARONE HYDROCHLORIDE) [Concomitant]
  21. LASILIX(FUROSEMIDE)(FUROSEMIDE) [Concomitant]
  22. KALEORIDE(POTASSIUM CHLORIDE)(POTASSIUM CHLORIDE) [Concomitant]
  23. DIFFU K (POTASSIUM CHLORIDE)(POTASSIUM CHLORIDE) [Concomitant]
  24. UVEDOSE(COLECALCIFEROL)(COLECALCIFEROL) [Concomitant]

REACTIONS (9)
  - Cholestasis [None]
  - Anaemia [None]
  - Inflammation [None]
  - Renal failure [None]
  - Oedema peripheral [None]
  - Rales [None]
  - Cholelithiasis [None]
  - Lung disorder [None]
  - Gastrointestinal motility disorder [None]
